FAERS Safety Report 9031343 (Version 8)
Quarter: 2014Q2

REPORT INFORMATION
  Report Type: Spontaneous
  Country: US (occurrence: US)
  Receive Date: 20130124
  Receipt Date: 20140501
  Transmission Date: 20141212
  Serious: Yes (Hospitalization, Other)
  Sender: FDA-Public Use
  Company Number: US-009507513-1301USA010313

PATIENT
  Sex: Female
  Weight: 84.81 kg

DRUGS (3)
  1. FOSAMAX [Suspect]
     Indication: OSTEOPOROSIS
     Dosage: 70 MG, UNK
     Route: 048
     Dates: start: 20070220, end: 20081223
  2. FOSAMAX [Suspect]
     Dosage: UNK
     Route: 048
  3. FOSAMAX PLUS D [Suspect]
     Indication: OSTEOPOROSIS
     Dosage: 70 MG/2800 IU QW
     Route: 048
     Dates: start: 20070220, end: 20081223

REACTIONS (24)
  - Internal fixation of fracture [Unknown]
  - Bone graft [Unknown]
  - Hip arthroplasty [Unknown]
  - Femur fracture [Unknown]
  - Knee arthroplasty [Unknown]
  - Arthritis [Unknown]
  - Haemorrhagic anaemia [Unknown]
  - Transfusion [Unknown]
  - Low turnover osteopathy [Unknown]
  - Arthritis [Unknown]
  - Exostosis [Unknown]
  - Pubis fracture [Unknown]
  - Cataract operation [Unknown]
  - Hypertension [Unknown]
  - Post procedural hypothyroidism [Unknown]
  - Osteoarthritis [Unknown]
  - Herpes zoster [Recovered/Resolved]
  - Limb asymmetry [Unknown]
  - Pain [Unknown]
  - Urinary tract infection [Unknown]
  - Fall [Unknown]
  - Stress fracture [Recovered/Resolved]
  - Osteoarthritis [Unknown]
  - Osteoarthritis [Unknown]
